FAERS Safety Report 21443476 (Version 1)
Quarter: 2022Q4

REPORT INFORMATION
  Report Type: Spontaneous
  Country: US (occurrence: US)
  Receive Date: 20221012
  Receipt Date: 20221012
  Transmission Date: 20230113
  Serious: Yes (Other)
  Sender: FDA-Public Use
  Company Number: US-SA-SAC20221011000094

PATIENT

DRUGS (2)
  1. ZANTAC [Suspect]
     Active Substance: RANITIDINE HYDROCHLORIDE
     Dosage: UNK (PRESCRIPTION ZANTAC)
     Route: 048
     Dates: start: 1990, end: 2019
  2. RANITIDINE [Suspect]
     Active Substance: RANITIDINE
     Dosage: UNK (PRESCRIPTION RANITIDINE)
     Route: 048
     Dates: start: 1990, end: 2019

REACTIONS (1)
  - Colorectal cancer [Unknown]
